FAERS Safety Report 9349605 (Version 2)
Quarter: 2013Q3

REPORT INFORMATION
  Report Type: Spontaneous
  Country: US (occurrence: US)
  Receive Date: 20130614
  Receipt Date: 20130703
  Transmission Date: 20140515
  Serious: No
  Sender: FDA-Public Use
  Company Number: US-009507513-1306USA005524

PATIENT
  Age: 56 Year
  Sex: Female
  Weight: 77.98 kg

DRUGS (4)
  1. SAPHRIS [Suspect]
     Indication: BIPOLAR DISORDER
     Dosage: 5 MG, BID
     Route: 060
  2. DEPAKOTE ER [Concomitant]
     Indication: BIPOLAR DISORDER
     Dosage: 3 DF, QD
     Route: 048
  3. KLONOPIN [Concomitant]
     Dosage: 1/2 TABLET AM
     Route: 048
  4. KLONOPIN [Concomitant]
     Dosage: 1 DF, HS
     Route: 048

REACTIONS (2)
  - Drug level increased [Not Recovered/Not Resolved]
  - Tremor [Unknown]
